FAERS Safety Report 13863294 (Version 2)
Quarter: 2017Q3

REPORT INFORMATION
  Report Type: Spontaneous
  Country: IT (occurrence: IT)
  Receive Date: 20170814
  Receipt Date: 20170822
  Transmission Date: 20171127
  Serious: Yes (Hospitalization, Other)
  Sender: FDA-Public Use
  Company Number: IT-ACCORD-057017

PATIENT
  Age: 38 Year
  Sex: Female

DRUGS (2)
  1. SENNA ALEXANDRINA [Interacting]
     Active Substance: SENNA LEAF
  2. FUROSEMIDE. [Suspect]
     Active Substance: FUROSEMIDE

REACTIONS (5)
  - Rhabdomyolysis [Recovered/Resolved]
  - Drug interaction [Unknown]
  - Familial periodic paralysis [Recovered/Resolved]
  - Drug abuse [Unknown]
  - Conduction disorder [Recovered/Resolved]
